FAERS Safety Report 5152971-6 (Version None)
Quarter: 2006Q4

REPORT INFORMATION
  Report Type: 
  Country: None (occurrence: None)
  Receive Date: 20061117
  Receipt Date: 20061002
  Transmission Date: 20070319
  Serious: Yes (Death, Hospitalization)
  Sender: FDA-Public Use
  Company Number: SA-ELI_LILLY_AND_COMPANY-SA200610000082

PATIENT
  Age: 62 Year
  Sex: Female

DRUGS (2)
  1. PROZAC [Concomitant]
     Indication: DEPRESSION
  2. FORTEO [Suspect]
     Indication: OSTEOPOROSIS
     Dosage: 20 UG, DAILY (1/D)
     Route: 065
     Dates: start: 20050613, end: 20050616

REACTIONS (6)
  - ASPERGILLOSIS [None]
  - BALANCE DISORDER [None]
  - GAIT DISTURBANCE [None]
  - HEADACHE [None]
  - UNEVALUABLE EVENT [None]
  - VOMITING PROJECTILE [None]
